FAERS Safety Report 15837689 (Version 1)
Quarter: 2019Q1

REPORT INFORMATION
  Report Type: Spontaneous
  Country: CA (occurrence: CA)
  Receive Date: 20190117
  Receipt Date: 20190117
  Transmission Date: 20190417
  Serious: Yes (Other)
  Sender: FDA-Public Use
  Company Number: CA-IGSA-SR10007643

PATIENT
  Age: 71 Year
  Sex: Male

DRUGS (1)
  1. HYPERRAB S/D [Suspect]
     Active Substance: HUMAN RABIES VIRUS IMMUNE GLOBULIN
     Indication: ANIMAL BITE
     Dosage: 105 UNKNOWN, SINGLE
     Route: 051

REACTIONS (3)
  - Syncope [Unknown]
  - Hypotension [Unknown]
  - Bradycardia [Unknown]
